FAERS Safety Report 12596913 (Version 5)
Quarter: 2016Q3

REPORT INFORMATION
  Report Type: Spontaneous
  Country: DK (occurrence: DK)
  Receive Date: 20160727
  Receipt Date: 20160923
  Transmission Date: 20161109
  Serious: Yes (Other)
  Sender: FDA-Public Use
  Company Number: PHHY2016DK101396

PATIENT
  Sex: Female

DRUGS (7)
  1. MOVICOL [Suspect]
     Active Substance: POLYETHYLENE GLYCOL 3350\POTASSIUM CHLORIDE\SODIUM BICARBONATE\SODIUM CHLORIDE
     Indication: CONSTIPATION
     Dosage: 2 DF, QHS
     Route: 065
     Dates: start: 201503
  2. VITAMIN E [Concomitant]
     Active Substance: .ALPHA.-TOCOPHEROL
     Indication: PRODUCT USED FOR UNKNOWN INDICATION
     Dosage: UNK UNK, QD
     Route: 065
  3. MAGNESIUM [Concomitant]
     Active Substance: MAGNESIUM
     Indication: PRODUCT USED FOR UNKNOWN INDICATION
     Dosage: EVERY MORNING
     Route: 065
  4. APROVEL [Concomitant]
     Active Substance: IRBESARTAN
     Indication: HYPERTENSION
     Dosage: 300 MG, QD
     Route: 065
  5. UNIKALK BASIC [Concomitant]
     Indication: PRODUCT USED FOR UNKNOWN INDICATION
     Dosage: 400 MG, BID
     Route: 065
  6. CLORIOCARD [Concomitant]
     Indication: COAGULOPATHY
     Dosage: 75 MG, QD
     Route: 065
  7. ACLASTA [Suspect]
     Active Substance: ZOLEDRONIC ACID
     Indication: OSTEOPOROSIS
     Dosage: UNK
     Route: 065
     Dates: start: 20160107

REACTIONS (17)
  - Poor quality sleep [Unknown]
  - Visual impairment [Unknown]
  - Mucosal haemorrhage [Unknown]
  - Burning sensation [Unknown]
  - Muscle spasms [Recovering/Resolving]
  - Oedema [Unknown]
  - Seizure [Unknown]
  - Corneal oedema [Unknown]
  - Musculoskeletal pain [Recovered/Resolved]
  - Pain [Unknown]
  - Mucosal dryness [Unknown]
  - Arthralgia [Not Recovered/Not Resolved]
  - Drug effect incomplete [Unknown]
  - Pain in extremity [Recovered/Resolved]
  - Paraesthesia [Not Recovered/Not Resolved]
  - Restless legs syndrome [Unknown]
  - Headache [Unknown]

NARRATIVE: CASE EVENT DATE: 20160225
